FAERS Safety Report 7022990-3 (Version None)
Quarter: 2010Q3

REPORT INFORMATION
  Report Type: 
  Country: None (occurrence: None)
  Receive Date: 20100930
  Receipt Date: 20100929
  Transmission Date: 20110219
  Serious: Yes (Hospitalization)
  Sender: FDA-Public Use
  Company Number: JP-BRISTOL-MYERS SQUIBB COMPANY-15296619

PATIENT
  Age: 46 Year
  Weight: 57 kg

DRUGS (6)
  1. CISPLATIN [Suspect]
     Indication: CERVIX CARCINOMA RECURRENT
     Dosage: CYCLE 1 (78MG):12APR10 CYCLE 7 (73.5):25AUG10
     Route: 042
     Dates: start: 20100412
  2. S-1 [Suspect]
     Indication: CERVIX CARCINOMA RECURRENT
     Dosage: C1(120MG):12APR10,C5(100MG)14JUL10,C7(100MG):25AUG10 THERAPY DATES:12-25APR10,25AUG-05SEP10
     Route: 048
     Dates: start: 20100412, end: 20100905
  3. DICLOFENAC SODIUM [Concomitant]
     Indication: TUMOUR PAIN
     Dosage: SUPPOSITORY; 50MG TID
     Dates: start: 20100802
  4. MAGNESIUM OXIDE [Concomitant]
     Indication: CONSTIPATION
     Route: 048
  5. SENNOSIDE [Concomitant]
     Indication: CONSTIPATION
     Route: 048
  6. FAMOTIDINE [Concomitant]
     Indication: ABDOMINAL PAIN UPPER
     Route: 048

REACTIONS (1)
  - RENAL FAILURE ACUTE [None]
